FAERS Safety Report 16646726 (Version 1)
Quarter: 2019Q3

REPORT INFORMATION
  Report Type: Spontaneous
  Country: US (occurrence: US)
  Receive Date: 20190617
  Receipt Date: 20190617
  Transmission Date: 20191004
  Serious: Yes (Hospitalization)
  Sender: FDA-Public Use
  Company Number: None

PATIENT
  Age: 63 Year
  Sex: Female

DRUGS (7)
  1. BENDRYL CAP [Concomitant]
  2. LETEOZOLE TAB [Concomitant]
  3. CITALOPRAM TAB [Concomitant]
  4. VRAYLAR CAP [Concomitant]
  5. CELEXA TAB [Concomitant]
  6. MELATONIN TAB [Concomitant]
  7. IBRANCE [Suspect]
     Active Substance: PALBOCICLIB
     Indication: DRUG THERAPY
     Dosage: ?          OTHER DOSE:1 C 21 DAYS ;?
     Route: 048
     Dates: start: 20190416

REACTIONS (2)
  - Mental disorder [None]
  - Breast cancer [None]

NARRATIVE: CASE EVENT DATE: 201905
